FAERS Safety Report 20886791 (Version 1)
Quarter: 2022Q2

REPORT INFORMATION
  Report Type: Spontaneous
  Country: US (occurrence: US)
  Receive Date: 20220528
  Receipt Date: 20220528
  Transmission Date: 20220721
  Serious: Yes (Other)
  Sender: FDA-Public Use
  Company Number: US-SA-SAC20220524000782

PATIENT
  Age: 80 Year
  Sex: Female

DRUGS (2)
  1. ZANTAC [Suspect]
     Active Substance: RANITIDINE HYDROCHLORIDE
     Indication: Gastrooesophageal reflux disease
     Dosage: UNKNOWN AT THIS TIME FREQUENCY: OTHER
     Dates: start: 199406
  2. ZANTAC [Suspect]
     Active Substance: RANITIDINE HYDROCHLORIDE
     Dosage: FREQUENCY: OTHER
     Dates: end: 201706

REACTIONS (1)
  - Breast cancer stage IV [Unknown]

NARRATIVE: CASE EVENT DATE: 20190101
